FAERS Safety Report 13121466 (Version 1)
Quarter: 2017Q1

REPORT INFORMATION
  Report Type: Spontaneous
  Country: US (occurrence: US)
  Receive Date: 20170114
  Receipt Date: 20170114
  Transmission Date: 20170428
  Serious: Yes (Disabling)
  Sender: FDA-Public Use
  Company Number: None

PATIENT
  Age: 45 Year
  Sex: Female
  Weight: 65.25 kg

DRUGS (10)
  1. DROSPIRENONE-ETHINYL ESTRADIOL [Concomitant]
     Active Substance: DROSPIRENONE\ETHINYL ESTRADIOL
  2. DEXAMETHASONE. [Suspect]
     Active Substance: DEXAMETHASONE
     Indication: NEURALGIA
     Dosage: ?          QUANTITY:1 INJECTION(S);?
     Route: 008
     Dates: start: 20161026, end: 20161026
  3. FEXOFENADINE [Concomitant]
     Active Substance: FEXOFENADINE\FEXOFENADINE HYDROCHLORIDE
  4. 2% LIDOCAINE [Suspect]
     Active Substance: LIDOCAINE
     Indication: NEURALGIA
     Dosage: ?          QUANTITY:1 INJECTION(S);?
     Route: 008
     Dates: start: 20161026, end: 20161026
  5. CELECOXIB. [Concomitant]
     Active Substance: CELECOXIB
  6. ACETAMINOPHEN. [Concomitant]
     Active Substance: ACETAMINOPHEN
  7. FLUTICASONE. [Concomitant]
     Active Substance: FLUTICASONE
  8. ALBUTEROL. [Concomitant]
     Active Substance: ALBUTEROL
  9. OMEGA-3 ACIDS [Concomitant]
     Active Substance: OMEGA-3 FATTY ACIDS
  10. CLINDAMYCIN. [Concomitant]
     Active Substance: CLINDAMYCIN

REACTIONS (4)
  - Throat tightness [None]
  - Hypoaesthesia [None]
  - Chills [None]
  - Throat irritation [None]

NARRATIVE: CASE EVENT DATE: 20161026
